FAERS Safety Report 12740925 (Version 2)
Quarter: 2016Q3

REPORT INFORMATION
  Report Type: Spontaneous
  Country: US (occurrence: US)
  Receive Date: 20160914
  Receipt Date: 20160920
  Transmission Date: 20161109
  Serious: No
  Sender: FDA-Public Use
  Company Number: US-009507513-1608USA013623

PATIENT
  Age: 58 Year
  Sex: Female

DRUGS (2)
  1. VENTOLIN HFA [Concomitant]
     Active Substance: ALBUTEROL SULFATE
  2. ASMANEX [Suspect]
     Active Substance: MOMETASONE FUROATE
     Indication: ASTHMA
     Dosage: ONE TO TWO PUFFS TWICE DAILY AS NEEDED
     Route: 055
     Dates: start: 20160822, end: 20160822

REACTIONS (4)
  - Dry mouth [Recovering/Resolving]
  - Muscle spasms [Recovering/Resolving]
  - Dry eye [Recovering/Resolving]
  - Tremor [Recovering/Resolving]

NARRATIVE: CASE EVENT DATE: 20160822
